FAERS Safety Report 7627720-X (Version None)
Quarter: 2011Q3

REPORT INFORMATION
  Report Type: 
  Country: None (occurrence: None)
  Receive Date: 20110721
  Receipt Date: 20110719
  Transmission Date: 20111222
  Serious: Yes (Death)
  Sender: FDA-Public Use
  Company Number: CHPA2011US09576

PATIENT
  Sex: Female

DRUGS (6)
  1. GAS-X CHEWABLE TABLETS PEPPERMINT CREME [Suspect]
     Indication: OESOPHAGITIS
  2. GAS-X CHEWABLE TABLETS PEPPERMINT CREME [Suspect]
     Indication: ABDOMINAL DISTENSION
  3. PREVACID [Concomitant]
     Dosage: UNK, UNK
     Route: 048
  4. GAS-X CHEWABLE TABLETS PEPPERMINT CREME [Suspect]
     Indication: GASTROOESOPHAGEAL REFLUX DISEASE
     Dosage: 640 MG TO 800MG, QD
     Route: 048
  5. GAS-X CHEWABLE TABLETS PEPPERMINT CREME [Suspect]
     Indication: FLATULENCE
  6. PANCREATIC ENZYMES [Concomitant]
     Indication: PANCREATIC ENZYMES DECREASED
     Dosage: UNK, UNK
     Route: 048

REACTIONS (4)
  - OVERDOSE [None]
  - CARDIAC ARREST [None]
  - DYSPNOEA [None]
  - OFF LABEL USE [None]
